FAERS Safety Report 6785181-7 (Version None)
Quarter: 2010Q2

REPORT INFORMATION
  Report Type: 
  Country: None (occurrence: None)
  Receive Date: 20100621
  Receipt Date: 20100621
  Transmission Date: 20101027
  Serious: No
  Sender: FDA-Public Use
  Company Number: None

PATIENT
  Age: 63 Year
  Sex: Female
  Weight: 111.1313 kg

DRUGS (1)
  1. JANUVIA [Suspect]
     Indication: TYPE 2 DIABETES MELLITUS
     Dosage: 100MG X1 DAILY BUCCAL
     Route: 002
     Dates: start: 20080101, end: 20100618

REACTIONS (5)
  - DIZZINESS [None]
  - DYSPHONIA [None]
  - PYREXIA [None]
  - RESPIRATORY TRACT INFECTION [None]
  - RHINORRHOEA [None]
